FAERS Safety Report 17902390 (Version 8)
Quarter: 2020Q4

REPORT INFORMATION
  Report Type: Spontaneous
  Country: FR (occurrence: FR)
  Receive Date: 20200617
  Receipt Date: 20201009
  Transmission Date: 20210113
  Serious: Yes (Other)
  Sender: FDA-Public Use
  Company Number: FR-PFIZER INC-2020212630

PATIENT
  Age: 52 Year
  Sex: Female
  Weight: 61 kg

DRUGS (1)
  1. IBRANCE [Suspect]
     Active Substance: PALBOCICLIB
     Indication: BREAST CANCER FEMALE
     Dosage: 125 MG, CYCLIC (DAILY, 3 WEEKS ON, 1 WEEK OFF
     Route: 048
     Dates: start: 20200522

REACTIONS (24)
  - Fatigue [Not Recovered/Not Resolved]
  - Stomatitis [Not Recovered/Not Resolved]
  - Vision blurred [Recovered/Resolved]
  - Palmar-plantar erythrodysaesthesia syndrome [Recovered/Resolved]
  - Abnormal sensation in eye [Unknown]
  - Aphthous ulcer [Not Recovered/Not Resolved]
  - Lacrimation increased [Unknown]
  - Rash [Recovered/Resolved]
  - Dry eye [Unknown]
  - Haemorrhoidal haemorrhage [Not Recovered/Not Resolved]
  - Aspiration [Not Recovered/Not Resolved]
  - Visual impairment [Unknown]
  - Nail discolouration [Unknown]
  - Premenstrual syndrome [Unknown]
  - Cough [Recovered/Resolved]
  - Neutropenia [Not Recovered/Not Resolved]
  - Dyspnoea exertional [Not Recovered/Not Resolved]
  - Dizziness [Not Recovered/Not Resolved]
  - Anaemia [Recovering/Resolving]
  - Thrombocytopenia [Not Recovered/Not Resolved]
  - Haemorrhage [Not Recovered/Not Resolved]
  - Mobility decreased [Unknown]
  - Mucosal inflammation [Not Recovered/Not Resolved]
  - Acne [Unknown]

NARRATIVE: CASE EVENT DATE: 20200528
